FAERS Safety Report 20859401 (Version 3)
Quarter: 2022Q3

REPORT INFORMATION
  Report Type: Spontaneous
  Country: JP (occurrence: JP)
  Receive Date: 20220523
  Receipt Date: 20220729
  Transmission Date: 20221027
  Serious: Yes (Hospitalization)
  Sender: FDA-Public Use
  Company Number: JP-HBP-2022JP026173

PATIENT
  Age: 81 Year
  Sex: Female

DRUGS (4)
  1. PALONOSETRON HYDROCHLORIDE [Suspect]
     Active Substance: PALONOSETRON HYDROCHLORIDE
     Indication: Prophylaxis of nausea and vomiting
     Dosage: UNK, UNKNOWN
     Route: 041
  2. AMIVANTAMAB [Concomitant]
     Active Substance: AMIVANTAMAB
     Dosage: 350 MILLIGRAM, Q2WK
     Route: 041
     Dates: start: 20220412, end: 20220421
  3. LAZERTINIB [Concomitant]
     Active Substance: LAZERTINIB
     Indication: Lung adenocarcinoma
     Dosage: 160 MILLIGRAM, QD
     Route: 048
     Dates: start: 20220412, end: 20220421
  4. LANSOPRAZOLE [Concomitant]
     Active Substance: LANSOPRAZOLE
     Indication: Gastric ulcer
     Dosage: 15 MILLIGRAM, QD
     Route: 048
     Dates: start: 20220412, end: 20220421

REACTIONS (2)
  - Constipation [Unknown]
  - Large intestine perforation [Recovered/Resolved]

NARRATIVE: CASE EVENT DATE: 20220421
